FAERS Safety Report 16076545 (Version 1)
Quarter: 2019Q1

REPORT INFORMATION
  Report Type: Spontaneous
  Country: US (occurrence: US)
  Receive Date: 20190214
  Receipt Date: 20190214
  Transmission Date: 20190418
  Serious: No
  Sender: FDA-Public Use
  Company Number: None

PATIENT
  Age: 91 Year
  Sex: Female

DRUGS (1)
  1. ODOMZO [Suspect]
     Active Substance: SONIDEGIB
     Indication: BASAL CELL CARCINOMA
     Dosage: ?          OTHER ROUTE:\L EMPTY STOMACH 1ER EATING AS DIRECTED?
     Dates: start: 201812

REACTIONS (3)
  - Insomnia [None]
  - Pain [None]
  - Fatigue [None]
